FAERS Safety Report 19967743 (Version 3)
Quarter: 2021Q4

REPORT INFORMATION
  Report Type: Spontaneous
  Country: JP (occurrence: JP)
  Receive Date: 20211019
  Receipt Date: 20211201
  Transmission Date: 20220304
  Serious: Yes (Hospitalization, Other)
  Sender: FDA-Public Use
  Company Number: JP-NOVARTISPH-NVSJ2021JP016958

PATIENT
  Age: 73 Year
  Sex: Male

DRUGS (5)
  1. METFORMIN HYDROCHLORIDE\VILDAGLIPTIN [Suspect]
     Active Substance: METFORMIN HYDROCHLORIDE\VILDAGLIPTIN
     Indication: Type 2 diabetes mellitus
     Dosage: 2 DF,1DF:METFORMIN HYDROCHLORIDE 250MG, VILDAGLIPTIN 50MG
     Route: 048
  2. AMLODIPINE [Suspect]
     Active Substance: AMLODIPINE BESYLATE
     Indication: Product used for unknown indication
     Dosage: 5 MG
     Route: 048
  3. BISOPROLOL FUMARATE [Suspect]
     Active Substance: BISOPROLOL FUMARATE
     Indication: Product used for unknown indication
     Dosage: 2.5 MG
     Route: 065
  4. NEXIUM [Suspect]
     Active Substance: ESOMEPRAZOLE MAGNESIUM
     Indication: Product used for unknown indication
     Dosage: 20 MG
     Route: 065
  5. FEBUXOSTAT [Suspect]
     Active Substance: FEBUXOSTAT
     Indication: Product used for unknown indication
     Dosage: 20 MG
     Route: 065

REACTIONS (10)
  - Lactic acidosis [Recovered/Resolved]
  - Decreased appetite [Unknown]
  - Altered state of consciousness [Unknown]
  - Hypoglycaemia [Recovered/Resolved]
  - Pancreatitis acute [Unknown]
  - Disseminated intravascular coagulation [Unknown]
  - Hypokalaemia [Unknown]
  - Renal impairment [Unknown]
  - Hypophosphataemia [Unknown]
  - Hypomagnesaemia [Unknown]

NARRATIVE: CASE EVENT DATE: 20211013
